FAERS Safety Report 8291692-8 (Version None)
Quarter: 2012Q2

REPORT INFORMATION
  Report Type: 
  Country: None (occurrence: None)
  Receive Date: 20120417
  Receipt Date: 20111128
  Transmission Date: 20120825
  Serious: Yes (Other)
  Sender: FDA-Public Use
  Company Number: US-ASTRAZENECA-2011SE72431

PATIENT
  Age: 71 Year
  Sex: Female

DRUGS (3)
  1. RECLAST [Suspect]
     Route: 065
  2. FOSAMAX [Concomitant]
  3. NEXIUM [Suspect]
     Route: 048

REACTIONS (3)
  - FEMUR FRACTURE [None]
  - GAIT DISTURBANCE [None]
  - LIMB DISCOMFORT [None]
